FAERS Safety Report 9996488 (Version 1)
Quarter: 2014Q1

REPORT INFORMATION
  Report Type: Spontaneous
  Country: US (occurrence: None)
  Receive Date: 20140228
  Receipt Date: 20140228
  Transmission Date: 20141002
  Serious: Yes (Other)
  Sender: FDA-Public Use
  Company Number: US-JNJFOC-20130903719

PATIENT
  Age: 65 Year
  Sex: Male

DRUGS (2)
  1. IBUPROFEN [Suspect]
     Indication: ANALGESIC THERAPY
     Dosage: 600 MG, 3 IN 1 DAY, ORAL
     Route: 048
     Dates: end: 2010
  2. TYLENOL (PARACETAMOL) UNSPECIFIED [Concomitant]

REACTIONS (4)
  - Haemorrhage [None]
  - Overdose [None]
  - Drug hypersensitivity [None]
  - Faeces discoloured [None]
